FAERS Safety Report 13157028 (Version 1)
Quarter: 2017Q1

REPORT INFORMATION
  Report Type: Spontaneous
  Country: BR (occurrence: BR)
  Receive Date: 20170127
  Receipt Date: 20170127
  Transmission Date: 20170428
  Serious: Yes (Hospitalization, Other)
  Sender: FDA-Public Use
  Company Number: BR-ZYDUS-013542

PATIENT
  Age: 20 Year
  Sex: Female

DRUGS (3)
  1. VALPROIC ACID. [Suspect]
     Active Substance: VALPROIC ACID
     Indication: PRODUCT USED FOR UNKNOWN INDICATION
     Route: 065
  2. DIAZEPAM. [Suspect]
     Active Substance: DIAZEPAM
     Indication: PRODUCT USED FOR UNKNOWN INDICATION
     Route: 065
  3. HALOPERIDOL. [Suspect]
     Active Substance: HALOPERIDOL
     Indication: PRODUCT USED FOR UNKNOWN INDICATION
     Route: 065

REACTIONS (22)
  - Neutropenia [Unknown]
  - Eosinophilia [Recovering/Resolving]
  - Blood alkaline phosphatase increased [Recovering/Resolving]
  - Renal impairment [Recovering/Resolving]
  - Somnolence [Unknown]
  - Erythema [Recovering/Resolving]
  - Lymphadenopathy [Unknown]
  - Normochromic normocytic anaemia [Unknown]
  - Leukocytosis [Recovering/Resolving]
  - Lymphocytosis [Recovering/Resolving]
  - C-reactive protein increased [Recovering/Resolving]
  - Treatment noncompliance [Recovered/Resolved]
  - Oedema peripheral [Unknown]
  - Transaminases increased [Recovering/Resolving]
  - Thrombocytopenia [Unknown]
  - Jaundice [Unknown]
  - Fatigue [Unknown]
  - Pyrexia [Recovered/Resolved]
  - Skin exfoliation [Recovering/Resolving]
  - Hepatomegaly [Unknown]
  - Gamma-glutamyltransferase increased [Recovering/Resolving]
  - Drug reaction with eosinophilia and systemic symptoms [Unknown]
